FAERS Safety Report 17430232 (Version 2)
Quarter: 2020Q2

REPORT INFORMATION
  Report Type: Spontaneous
  Country: US (occurrence: US)
  Receive Date: 20200218
  Receipt Date: 20200618
  Transmission Date: 20200713
  Serious: No
  Sender: FDA-Public Use
  Company Number: US-PFIZER INC-2020063770

PATIENT
  Age: 69 Year
  Sex: Female

DRUGS (1)
  1. LYRICA [Suspect]
     Active Substance: PREGABALIN
     Dosage: UNK, 3X/DAY (250MG DAILY[50MG ONE AM, ONE PM, 150MG ONE QHS (EVERY NIGHT AT BEDTIME)])

REACTIONS (1)
  - Psoriasis [Unknown]
